FAERS Safety Report 23700370 (Version 1)
Quarter: 2024Q2

REPORT INFORMATION
  Report Type: Spontaneous
  Country: US (occurrence: US)
  Receive Date: 20240403
  Receipt Date: 20240403
  Transmission Date: 20240716
  Serious: No
  Sender: FDA-Public Use
  Company Number: US-TEVA-04-10-1486

PATIENT
  Age: 86 Year
  Sex: Female

DRUGS (2)
  1. GABAPENTIN [Suspect]
     Active Substance: GABAPENTIN
     Indication: Trigeminal neuralgia
     Dosage: TIME INTERVAL: 0.16666667 DAYS: 300MG 6X/DAY, 100 MG, 300 MG, 400 MG, 600MG 800 MG, DURATION: 26 ...
     Route: 048
     Dates: start: 200410, end: 20041026
  2. TEGRETOL [Concomitant]
     Active Substance: CARBAMAZEPINE
     Indication: Trigeminal neuralgia

REACTIONS (2)
  - Pruritus [Unknown]
  - Dysgeusia [Unknown]

NARRATIVE: CASE EVENT DATE: 20041001
